FAERS Safety Report 8388022-X (Version None)
Quarter: 2012Q2

REPORT INFORMATION
  Report Type: 
  Country: None (occurrence: None)
  Receive Date: 20120525
  Receipt Date: 20120515
  Transmission Date: 20120825
  Serious: Yes (Hospitalization)
  Sender: FDA-Public Use
  Company Number: BR-BRISTOL-MYERS SQUIBB COMPANY-16599979

PATIENT
  Age: 70 Year
  Sex: Female
  Weight: 65 kg

DRUGS (3)
  1. LEVOTHYROXINE SODIUM [Concomitant]
     Indication: THYROID DISORDER
     Dosage: 1DF=1TAB 75 MCG
     Route: 048
  2. IRBESARTAN [Suspect]
     Indication: HYPERTENSION
     Dosage: APROVEL 300MG STARTED 10YRS AGO AND ONGOING.
     Route: 048
     Dates: start: 19820101
  3. VERAPAMIL [Concomitant]
     Indication: HYPERTENSION
     Dosage: 3TABS/DY IN THE MRNG,AFTRNUN 80MG
     Route: 048
     Dates: start: 19820101

REACTIONS (4)
  - BACK PAIN [None]
  - BLOOD PRESSURE INCREASED [None]
  - LABYRINTHITIS [None]
  - RETINAL TEAR [None]
